FAERS Safety Report 7399587-9 (Version None)
Quarter: 2011Q2

REPORT INFORMATION
  Report Type: 
  Country: None (occurrence: None)
  Receive Date: 20110405
  Receipt Date: 20110405
  Transmission Date: 20111010
  Serious: Yes (Other)
  Sender: FDA-Public Use
  Company Number: None

PATIENT

DRUGS (2)
  1. LITTLE REMEDIES FEVER REDUCER 80MG/1ML PRESTIGE [Suspect]
     Indication: PYREXIA
  2. LITTLE REMEDIES FEVER REDUCER 80MG/1ML PRESTIGE [Suspect]
     Indication: PAIN

REACTIONS (2)
  - PRODUCT LABEL ISSUE [None]
  - PRODUCT FORMULATION ISSUE [None]
